FAERS Safety Report 8133682-1 (Version None)
Quarter: 2012Q1

REPORT INFORMATION
  Report Type: 
  Country: None (occurrence: None)
  Receive Date: 20120213
  Receipt Date: 20120208
  Transmission Date: 20120608
  Serious: Yes (Congenital Anomaly)
  Sender: FDA-Public Use
  Company Number: PHHY2012DE011583

PATIENT
  Sex: Male
  Weight: 3.31 kg

DRUGS (3)
  1. KEPPRA [Suspect]
     Dosage: MATERNAL DOSE: 2000 MG
  2. TRILEPTAL [Suspect]
     Dosage: MATERNAL DOSE: 1500 MG/DAY (600-0-900)
     Route: 064
  3. CEFUROXIME [Concomitant]

REACTIONS (2)
  - TALIPES [None]
  - ATRIAL SEPTAL DEFECT [None]
